FAERS Safety Report 6816177-4 (Version None)
Quarter: 2010Q3

REPORT INFORMATION
  Report Type: 
  Country: None (occurrence: None)
  Receive Date: 20100702
  Receipt Date: 20100702
  Transmission Date: 20110219
  Serious: Yes (Hospitalization)
  Sender: FDA-Public Use
  Company Number: None

PATIENT
  Age: 52 Year
  Sex: Female
  Weight: 63.5036 kg

DRUGS (8)
  1. LISINOPRIL [Suspect]
     Indication: HYPERTENSION
     Dosage: 40 MG PO CHRONIC
     Route: 048
  2. ASPIRIN [Concomitant]
  3. ACTOS [Concomitant]
  4. LANTUS [Concomitant]
  5. HYDROCHLOROTHIAZIDE [Concomitant]
  6. CELEXA [Concomitant]
  7. ATENOLOL [Concomitant]
  8. NOVOLOG [Concomitant]

REACTIONS (1)
  - ANGIOEDEMA [None]
